FAERS Safety Report 6782132 (Version 3)
Quarter: 2020Q3

REPORT INFORMATION
  Report Type: Report from Study
  Country: US (occurrence: US)
  Receive Date: 20081008
  Receipt Date: 20100319
  Transmission Date: 20201105
  Serious: Yes (Other)
  Sender: FDA-Public Use
  Company Number: US-ROCHE-588530

PATIENT
  Age: 85 Year
  Sex: Female
  Weight: 72.7 kg

DRUGS (2)
  1. IBANDRONIC ACID. [Suspect]
     Active Substance: IBANDRONIC ACID
     Indication: OSTEOPENIA
     Route: 048
     Dates: start: 2007
  2. EVISTA [Concomitant]
     Active Substance: RALOXIFENE HYDROCHLORIDE
     Indication: OSTEOPOROSIS PROPHYLAXIS

REACTIONS (2)
  - Spinal fracture [Not Recovered/Not Resolved]
  - Bone density decreased [Not Recovered/Not Resolved]
